FAERS Safety Report 20313800 (Version 5)
Quarter: 2022Q2

REPORT INFORMATION
  Report Type: Spontaneous
  Country: US (occurrence: US)
  Receive Date: 20220109
  Receipt Date: 20220505
  Transmission Date: 20220721
  Serious: Yes (Hospitalization)
  Sender: FDA-Public Use
  Company Number: US-SANOFI-00761937

PATIENT
  Age: 64 Year
  Sex: Female

DRUGS (1)
  1. DUPIXENT [Suspect]
     Active Substance: DUPILUMAB
     Indication: Asthma
     Dosage: 300 MG, QOW
     Dates: start: 20201230

REACTIONS (7)
  - Adverse event [Unknown]
  - Spinal operation [Unknown]
  - Asthma [Not Recovered/Not Resolved]
  - Dyspnoea [Unknown]
  - Infection [Unknown]
  - Illness [Unknown]
  - Product use issue [Unknown]

NARRATIVE: CASE EVENT DATE: 20211202
